FAERS Safety Report 8146548 (Version 2)
Quarter: 2014Q3

REPORT INFORMATION
  Report Type: Report from Study
  Country: JP (occurrence: JP)
  Receive Date: 20110921
  Receipt Date: 20140820
  Transmission Date: 20150326
  Serious: Yes (Other)
  Sender: FDA-Public Use
  Company Number: PHHY2011JP43998

PATIENT
  Age: 63 Year
  Sex: Female

DRUGS (3)
  1. BIOFERMIN [Concomitant]
     Active Substance: BACILLUS SUBTILIS\LACTOBACILLUS ACIDOPHILUS\STREPTOCOCCUS FAECAIS
     Dosage: 3 G, UNK
     Route: 048
  2. AMN107 [Suspect]
     Active Substance: NILOTINIB
     Indication: CHRONIC MYELOID LEUKAEMIA
     Dosage: 800 MG, DAILY
     Route: 048
     Dates: start: 20100917, end: 20101002
  3. POTASSIUM GLUCONATE [Concomitant]
     Active Substance: POTASSIUM GLUCONATE
     Indication: HYPOKALAEMIA
     Dosage: 3 MEQ, UNK

REACTIONS (11)
  - Electrocardiogram ST segment depression [Recovered/Resolved]
  - Chest discomfort [Unknown]
  - Atrial fibrillation [Unknown]
  - Right ventricular failure [Recovered/Resolved]
  - Pericardial effusion [Recovered/Resolved]
  - Heart rate increased [Recovered/Resolved]
  - Hepatic congestion [Recovered/Resolved]
  - Sinus tachycardia [Unknown]
  - Electrocardiogram T wave amplitude increased [Recovered/Resolved]
  - Abdominal pain upper [Unknown]
  - Atrioventricular block first degree [Unknown]

NARRATIVE: CASE EVENT DATE: 20101002
